FAERS Safety Report 5150421-7 (Version None)
Quarter: 2006Q4

REPORT INFORMATION
  Report Type: 
  Country: None (occurrence: None)
  Receive Date: 20061114
  Receipt Date: 20060616
  Transmission Date: 20070319
  Serious: Yes (Hospitalization)
  Sender: FDA-Public Use
  Company Number: PHHO2006AU10259

PATIENT
  Age: 68 Year
  Sex: Male
  Weight: 59 kg

DRUGS (2)
  1. PLATELETS [Concomitant]
  2. GLEEVEC [Suspect]
     Indication: CHRONIC MYELOID LEUKAEMIA
     Dosage: 400 MG, BID
     Route: 048
     Dates: start: 20060413, end: 20060607

REACTIONS (5)
  - HAEMATOMA INFECTION [None]
  - HAEMOPTYSIS [None]
  - HYPERHIDROSIS [None]
  - PYREXIA [None]
  - THROMBOCYTOPENIA [None]
